FAERS Safety Report 12248379 (Version 1)
Quarter: 2016Q2

REPORT INFORMATION
  Report Type: Spontaneous
  Country: US (occurrence: None)
  Receive Date: 20160407
  Receipt Date: 20160407
  Transmission Date: 20160815
  Serious: No
  Sender: FDA-Public Use
  Company Number: None

PATIENT
  Age: 61 Year
  Sex: Female
  Weight: 45.36 kg

DRUGS (1)
  1. VIGAMOX [Suspect]
     Active Substance: MOXIFLOXACIN HYDROCHLORIDE
     Indication: CONJUNCTIVITIS
     Dosage: INTO THE EYE
     Route: 047
     Dates: start: 20160309, end: 20160312

REACTIONS (2)
  - Dry eye [None]
  - Ocular hyperaemia [None]

NARRATIVE: CASE EVENT DATE: 20160311
